FAERS Safety Report 7288566-8 (Version None)
Quarter: 2011Q1

REPORT INFORMATION
  Report Type: 
  Country: None (occurrence: None)
  Receive Date: 20110211
  Receipt Date: 20110203
  Transmission Date: 20110831
  Serious: Yes (Hospitalization, Other)
  Sender: FDA-Public Use
  Company Number: DE-JNJFOC-20101105833

PATIENT
  Age: 14 Year
  Sex: Female
  Weight: 57 kg

DRUGS (5)
  1. CONCERTA [Suspect]
     Indication: ATTENTION DEFICIT/HYPERACTIVITY DISORDER
     Route: 048
  2. ORAL CONTRACEPTION [Concomitant]
     Route: 065
  3. CONCERTA [Suspect]
     Route: 048
  4. SYMBICORT [Concomitant]
     Indication: ASTHMA
     Route: 065
  5. BRONCHOSPRAY [Concomitant]
     Route: 065

REACTIONS (14)
  - SUICIDE ATTEMPT [None]
  - SYMPATHOMIMETIC EFFECT [None]
  - DISSOCIATION [None]
  - FATIGUE [None]
  - THINKING ABNORMAL [None]
  - INTENTIONAL OVERDOSE [None]
  - DRUG INEFFECTIVE [None]
  - THIRST [None]
  - ILLUSION [None]
  - DYSTONIA [None]
  - POISONING [None]
  - FEELING ABNORMAL [None]
  - PERIPHERAL COLDNESS [None]
  - INSOMNIA [None]
